FAERS Safety Report 9176861 (Version 3)
Quarter: 2013Q2

REPORT INFORMATION
  Report Type: Spontaneous
  Country: IE (occurrence: IE)
  Receive Date: 20130321
  Receipt Date: 20130530
  Transmission Date: 20140414
  Serious: Yes (Hospitalization, Disabling, Other)
  Sender: FDA-Public Use
  Company Number: PHFR2008IE01070

PATIENT
  Age: 40 Year
  Sex: Male

DRUGS (11)
  1. CLOZARIL [Suspect]
     Indication: SCHIZOPHRENIA
     Dosage: 125 MG, DAILY
     Route: 048
     Dates: start: 19970303
  2. CLOZARIL [Suspect]
     Dosage: 125 MG,DAILY
     Route: 048
     Dates: start: 20070601, end: 20130205
  3. FLUOXETINE [Concomitant]
     Dosage: 20 MG, DAILY
     Route: 048
     Dates: start: 2007
  4. CARBIMAZOLE [Concomitant]
     Dosage: 40 MG, DAILY
     Route: 048
  5. AMLODIPINE [Concomitant]
     Indication: BLOOD PRESSURE INCREASED
     Dosage: 5 MG, DAILY
     Route: 048
  6. ARIPIPRAZOLE [Concomitant]
     Indication: PSYCHOTIC DISORDER
     Dosage: 15 MG, DAILY
     Route: 048
     Dates: start: 200712
  7. ARIPIPRAZOLE [Concomitant]
     Dosage: 20 MG,
     Route: 048
     Dates: start: 200801
  8. ARIPIPRAZOLE [Concomitant]
     Dosage: 15 UNK, UNK
     Route: 048
     Dates: start: 201303
  9. DISULFIRAM [Concomitant]
     Indication: ALCOHOLISM
     Dosage: 200 MG, DAILY
     Route: 048
     Dates: start: 200801
  10. QUETIAPINE [Concomitant]
     Indication: PSYCHOTIC DISORDER
     Dosage: 50 MG, UNK
     Route: 048
     Dates: start: 201302
  11. THEOPHYLLINE [Concomitant]
     Indication: ASTHMA
     Dosage: 200 MG, DAILY
     Route: 048

REACTIONS (12)
  - Pneumonia [Recovered/Resolved]
  - Dyspnoea [Unknown]
  - Lower respiratory tract infection [Unknown]
  - Pyrexia [Unknown]
  - Chest pain [Unknown]
  - Obesity [Recovering/Resolving]
  - Weight increased [Recovering/Resolving]
  - Sleep apnoea syndrome [Recovering/Resolving]
  - Hypothyroidism [Recovering/Resolving]
  - Tachycardia [Recovering/Resolving]
  - Sedation [Recovering/Resolving]
  - Hypertension [Unknown]
